FAERS Safety Report 5823956-9 (Version None)
Quarter: 2008Q3

REPORT INFORMATION
  Report Type: 
  Country: None (occurrence: None)
  Receive Date: 20080724
  Receipt Date: 20080709
  Transmission Date: 20090109
  Serious: Yes (Death)
  Sender: FDA-Public Use
  Company Number: FABR-1000331

PATIENT
  Age: 60 Year
  Sex: Female
  Weight: 90.9 kg

DRUGS (1)
  1. FABRAZYME [Suspect]
     Indication: FABRY'S DISEASE
     Dosage: 90 MG,Q2W, INTRAVENOUS
     Route: 042
     Dates: start: 20040101, end: 20080709

REACTIONS (1)
  - DEATH [None]
